FAERS Safety Report 5717282-6 (Version None)
Quarter: 2008Q2

REPORT INFORMATION
  Report Type: 
  Country: None (occurrence: None)
  Receive Date: 20080423
  Receipt Date: 20080411
  Transmission Date: 20081010
  Serious: Yes (Death)
  Sender: FDA-Public Use
  Company Number: S08-IRL-01124-01

PATIENT
  Age: 20 Year
  Sex: Female

DRUGS (2)
  1. CITALOPRAM HYDROBROMIDE [Suspect]
     Indication: DEPRESSION
     Dosage: 20 MG QD PO
     Route: 048
     Dates: start: 20040301, end: 20040401
  2. CITALOPRAM HYDROBROMIDE [Suspect]
     Indication: DEPRESSION

REACTIONS (1)
  - COMPLETED SUICIDE [None]
